FAERS Safety Report 4305802-8 (Version None)
Quarter: 2004Q1

REPORT INFORMATION
  Report Type: 
  Country: None (occurrence: None)
  Receive Date: 20040226
  Receipt Date: 20040226
  Transmission Date: 20041129
  Serious: Yes (Life-Threatening)
  Sender: FDA-Public Use
  Company Number: None

PATIENT
  Sex: Male
  Weight: 90.7194 kg

DRUGS (16)
  1. GATIFLOXACIN 400MG [Suspect]
     Indication: UPPER RESPIRATORY TRACT INFECTION
     Dosage: 400MG QD ORAL
     Route: 048
     Dates: start: 20040220, end: 20040224
  2. RANITIDINE [Concomitant]
  3. RABEPRAZOLE SODIUM [Concomitant]
  4. PREDNISONE [Concomitant]
  5. METFORMIN [Concomitant]
  6. NIACIN [Concomitant]
  7. BUPROPRION SA [Concomitant]
  8. ALBUTEROL [Concomitant]
  9. IPRATROPIUM BROMIDE [Concomitant]
  10. ISOSORBIDE MONONITRATE [Concomitant]
  11. IRBESARTAN [Concomitant]
  12. IBUPROFEN [Concomitant]
  13. GLIPIZIDE [Concomitant]
  14. ADVAIR DISKUS 100/50 [Concomitant]
  15. THEOPHYLLINE [Concomitant]
  16. SIMVASTATIN [Concomitant]

REACTIONS (1)
  - HYPOGLYCAEMIA [None]
